FAERS Safety Report 14844100 (Version 1)
Quarter: 2018Q2

REPORT INFORMATION
  Report Type: Spontaneous
  Country: US (occurrence: US)
  Receive Date: 20180503
  Receipt Date: 20180503
  Transmission Date: 20180711
  Serious: No
  Sender: FDA-Public Use
  Company Number: US-BIOMARINAP-US-2018-117973

PATIENT
  Age: 19 Year
  Sex: Male
  Weight: 26 kg

DRUGS (1)
  1. VIMIZIM [Suspect]
     Active Substance: ELOSULFASE ALFA
     Indication: PRODUCT USED FOR UNKNOWN INDICATION
     Dosage: 55 MG, QW
     Route: 042

REACTIONS (2)
  - Drug dose omission [Unknown]
  - Vascular access complication [Unknown]

NARRATIVE: CASE EVENT DATE: 20180413
